FAERS Safety Report 16382985 (Version 1)
Quarter: 2019Q2

REPORT INFORMATION
  Report Type: Spontaneous
  Country: CA (occurrence: CA)
  Receive Date: 20190603
  Receipt Date: 20190603
  Transmission Date: 20190711
  Serious: Yes (Hospitalization)
  Sender: FDA-Public Use
  Company Number: CA-DSJP-DSU-2019-119536

PATIENT

DRUGS (5)
  1. ATORVASTATIN CALCIUM. [Concomitant]
     Active Substance: ATORVASTATIN CALCIUM
     Indication: PRODUCT USED FOR UNKNOWN INDICATION
     Route: 065
  2. LEVOTHYROXINE. [Concomitant]
     Active Substance: LEVOTHYROXINE
     Indication: PRODUCT USED FOR UNKNOWN INDICATION
     Route: 065
  3. ZOPICLONE [Concomitant]
     Active Substance: ZOPICLONE
     Indication: PRODUCT USED FOR UNKNOWN INDICATION
     Route: 065
  4. OLMESARTAN MEDOXOMIL. [Suspect]
     Active Substance: OLMESARTAN MEDOXOMIL
     Indication: HYPERTENSION
     Dosage: 2. MG, QD
     Route: 048
  5. FUROSEMIDE. [Concomitant]
     Active Substance: FUROSEMIDE
     Indication: PRODUCT USED FOR UNKNOWN INDICATION
     Route: 065

REACTIONS (22)
  - CD20 antigen positive [Recovered/Resolved]
  - Central venous catheterisation [Recovered/Resolved]
  - Abdominal pain [Recovered/Resolved]
  - Blood albumin decreased [Recovered/Resolved]
  - Diarrhoea [Recovered/Resolved]
  - Embolism venous [Recovered/Resolved]
  - Nausea [Recovered/Resolved]
  - Parenteral nutrition [Recovered/Resolved]
  - Vomiting [Recovered/Resolved]
  - Erosive duodenitis [Recovered/Resolved]
  - Gastritis erosive [Recovered/Resolved]
  - Gastrointestinal mucosal exfoliation [Recovered/Resolved]
  - Intestinal villi atrophy [Recovered/Resolved]
  - Gastrointestinal wall thickening [Recovered/Resolved]
  - Generalised oedema [Recovered/Resolved]
  - B-lymphocyte count increased [Recovered/Resolved]
  - Clostridium test negative [Recovered/Resolved]
  - Lymphoproliferative disorder [Recovered/Resolved]
  - Gastric mucosal hypertrophy [Recovered/Resolved]
  - Parasite stool test negative [Recovered/Resolved]
  - Malnutrition [Recovered/Resolved]
  - Subclavian vein thrombosis [Recovered/Resolved]
